FAERS Safety Report 24278684 (Version 8)
Quarter: 2024Q3

REPORT INFORMATION
  Report Type: Report from Study
  Country: CA (occurrence: CA)
  Receive Date: 20240903
  Receipt Date: 20240918
  Transmission Date: 20241016
  Serious: Yes (Hospitalization, Other)
  Sender: HLS THERAPEUTICS
  Company Number: CA-HLS-202402162

PATIENT
  Age: 36 Year
  Sex: Male

DRUGS (6)
  1. CLOZARIL [Suspect]
     Active Substance: CLOZAPINE
     Indication: Schizoaffective disorder bipolar type
     Dosage: 25MG AT BEDTIME
     Route: 048
  2. CLOZARIL [Suspect]
     Active Substance: CLOZAPINE
     Indication: Schizoaffective disorder bipolar type
     Dosage: 275MG NIGHTLY
     Route: 048
     Dates: start: 20240229, end: 20240826
  3. CLOZARIL [Suspect]
     Active Substance: CLOZAPINE
     Indication: Schizoaffective disorder bipolar type
     Dosage: 50 MG PER DAY
     Route: 048
  4. ABILIFY [Suspect]
     Active Substance: ARIPIPRAZOLE
     Indication: Schizoaffective disorder bipolar type
     Dosage: 5MG NIGHTLY
     Route: 065
  5. LITHIUM [Suspect]
     Active Substance: LITHIUM
     Indication: Schizoaffective disorder bipolar type
     Dosage: 1350MG NIGHTLY
     Route: 065
  6. LITHIUM [Suspect]
     Active Substance: LITHIUM
     Indication: Schizoaffective disorder bipolar type
     Route: 065

REACTIONS (16)
  - Neutropenia [Recovering/Resolving]
  - Agranulocytosis [Unknown]
  - Bicytopenia [Unknown]
  - Vitamin B12 increased [Unknown]
  - Serum ferritin increased [Unknown]
  - Hepatic enzyme increased [Not Recovered/Not Resolved]
  - Malaise [Unknown]
  - Thrombocytopenia [Unknown]
  - Nausea [Unknown]
  - Treatment noncompliance [Unknown]
  - Paranoia [Unknown]
  - Salivary hypersecretion [Unknown]
  - Dysarthria [Unknown]
  - Viral infection [Unknown]
  - Vomiting [Unknown]
  - Leukopenia [Recovering/Resolving]

NARRATIVE: CASE EVENT DATE: 20240825
